FAERS Safety Report 4398634-6 (Version None)
Quarter: 2004Q3

REPORT INFORMATION
  Report Type: 
  Country: None (occurrence: None)
  Receive Date: 20040712
  Receipt Date: 20040626
  Transmission Date: 20050211
  Serious: Yes (Hospitalization)
  Sender: FDA-Public Use
  Company Number: 8003493

PATIENT
  Age: 49 Year
  Sex: Male

DRUGS (15)
  1. KEPPRA [Suspect]
     Indication: EPILEPSY
     Dosage: 250 MG 2/D PC
     Dates: start: 20030509, end: 20030601
  2. ZOLOFT [Suspect]
     Indication: DEPRESSION
     Dosage: 50 MG/R
     Dates: end: 20030601
  3. LEHYDAN [Concomitant]
  4. FENEMAL ^RECIP^ [Concomitant]
  5. FOLACIN [Concomitant]
  6. BETAPRED [Concomitant]
  7. BEHEPAN [Concomitant]
  8. NITRAZEPAM ^RECIP^ [Concomitant]
  9. ANDAPSIN [Concomitant]
  10. TRADOLAN [Concomitant]
  11. DIAZEPAM [Concomitant]
  12. OXAZEPAM [Concomitant]
  13. VITAMIN B COMPLEX CAP [Concomitant]
  14. ZOLPIDEM TARTRATE [Concomitant]
  15. CEFUROXIM [Concomitant]

REACTIONS (4)
  - ANXIETY [None]
  - HAEMATURIA [None]
  - HAEMOGLOBIN DECREASED [None]
  - IDIOPATHIC THROMBOCYTOPENIC PURPURA [None]
